FAERS Safety Report 7528571-7 (Version None)
Quarter: 2011Q2

REPORT INFORMATION
  Report Type: 
  Country: None (occurrence: None)
  Receive Date: 20110607
  Receipt Date: 20040430
  Transmission Date: 20111010
  Serious: Yes (Death)
  Sender: FDA-Public Use
  Company Number: PHHO2004CA06047

PATIENT
  Sex: Female

DRUGS (7)
  1. FERROUS SULFATE TAB [Concomitant]
  2. GABAPENTIN [Concomitant]
  3. METFORMIN HCL [Concomitant]
  4. ALTACE [Concomitant]
  5. CLOZARIL [Suspect]
     Indication: SCHIZOPHRENIA
     Route: 048
     Dates: start: 19970227
  6. PAXIL [Concomitant]
  7. SINEMET [Concomitant]

REACTIONS (1)
  - DEATH [None]
